FAERS Safety Report 10035296 (Version 1)
Quarter: 2014Q1

REPORT INFORMATION
  Report Type: Spontaneous
  Country: FR (occurrence: FR)
  Receive Date: 20140325
  Receipt Date: 20140325
  Transmission Date: 20141002
  Serious: Yes (Other)
  Sender: FDA-Public Use
  Company Number: PHHY2014FR035256

PATIENT
  Age: 45 Year
  Sex: Female

DRUGS (6)
  1. GILENYA [Suspect]
     Indication: MULTIPLE SCLEROSIS
     Dosage: 0.5 MG, QD
     Route: 048
     Dates: start: 20130808, end: 20131107
  2. TYSABRI [Suspect]
     Indication: MULTIPLE SCLEROSIS
     Dosage: UNK UKN, UNK
     Dates: start: 20101124, end: 20130619
  3. DIMETHYL FUMARATE [Suspect]
     Indication: MULTIPLE SCLEROSIS
     Dosage: 120 MG, BID
     Route: 048
     Dates: start: 20131125, end: 20131202
  4. DIMETHYL FUMARATE [Suspect]
     Dosage: 240 MG, BID
     Dates: start: 20131202
  5. COPAXONE [Suspect]
     Indication: MULTIPLE SCLEROSIS
     Dosage: 20 MG, BID
     Route: 058
     Dates: end: 201011
  6. SOLUMEDROL [Concomitant]
     Dosage: 1 G, UNK
     Dates: start: 201306

REACTIONS (1)
  - Invasive ductal breast carcinoma [Not Recovered/Not Resolved]
